FAERS Safety Report 6941897-0 (Version None)
Quarter: 2010Q3

REPORT INFORMATION
  Report Type: 
  Country: None (occurrence: None)
  Receive Date: 20100826
  Receipt Date: 20100729
  Transmission Date: 20110219
  Serious: No
  Sender: FDA-Public Use
  Company Number: US-PFIZER INC-2010096086

PATIENT
  Sex: Male

DRUGS (1)
  1. CLINDAMYCIN PHOSPHATE [Suspect]
     Dosage: UNK
     Dates: start: 20100706, end: 20100713

REACTIONS (2)
  - ABDOMINAL PAIN [None]
  - DIARRHOEA [None]
